FAERS Safety Report 13297789 (Version 1)
Quarter: 2017Q1

REPORT INFORMATION
  Report Type: Report from Study
  Country: JP (occurrence: JP)
  Receive Date: 20170306
  Receipt Date: 20170306
  Transmission Date: 20170428
  Serious: Yes (Hospitalization, Other)
  Sender: FDA-Public Use
  Company Number: JP-BRISTOL-MYERS SQUIBB COMPANY-B045099

PATIENT
  Age: 35 Year
  Sex: Male

DRUGS (9)
  1. STAVUDINE. [Suspect]
     Active Substance: STAVUDINE
     Indication: HIV INFECTION
     Dosage: D/C^D 1/13/00, RESTARTED 3/11/00 - 3/31/01 80 MG/DAY THEN 2/3/03 TO UNKNOWN 60 MG/DAY
     Route: 048
     Dates: start: 19970731
  2. INVIRASE [Suspect]
     Active Substance: SAQUINAVIR MESYLATE
     Indication: HIV INFECTION
     Dosage: STOPPED 13-JAN-2000, 1800 MG/DAY 11-MAR-2000 TO 31-MAR-2001, 1800 MG/DAY 18-MAR-2003 TO UNKNOWN
     Route: 048
     Dates: start: 19970417
  3. PEGINTERFERON ALFA-2A [Concomitant]
     Active Substance: PEGINTERFERON ALFA-2A
     Indication: PRODUCT USED FOR UNKNOWN INDICATION
     Route: 065
  4. DENOSINE [Concomitant]
     Active Substance: GANCICLOVIR
     Indication: PRODUCT USED FOR UNKNOWN INDICATION
     Dosage: 1000 MG, TID
     Route: 048
     Dates: start: 19970814, end: 19980304
  5. BENAMBAX [Concomitant]
     Active Substance: PENTAMIDINE
     Indication: PRODUCT USED FOR UNKNOWN INDICATION
     Dosage: 500 MG, QD
     Route: 065
     Dates: start: 19950608, end: 19980716
  6. URSO [Concomitant]
     Active Substance: URSODIOL
     Indication: PRODUCT USED FOR UNKNOWN INDICATION
     Dosage: 200 MG, TID
     Route: 048
     Dates: start: 20030401
  7. EPIVIR [Suspect]
     Active Substance: LAMIVUDINE
     Indication: HIV INFECTION
     Dosage: STOPPED 13-JAN-2000, RESTARTED 11-MAR-2000 TO 31-MAR-2001, RESTARTED 18-MAR-2003 TO UNKNOWN
     Route: 048
     Dates: start: 19970314
  8. NEO-MINOPHAGEN C [Concomitant]
     Active Substance: AMMONIUM GLYCYRRHIZATE
     Indication: PRODUCT USED FOR UNKNOWN INDICATION
     Dosage: 100 ML, QWK
     Route: 065
     Dates: start: 20030401
  9. CROSS EIGHT M [Concomitant]
     Active Substance: ANTIHEMOPHILIC FACTOR HUMAN
     Indication: PRODUCT USED FOR UNKNOWN INDICATION
     Dosage: UNK
     Route: 065
     Dates: start: 20030203

REACTIONS (3)
  - Hepatic cirrhosis [Not Recovered/Not Resolved]
  - Hepatic function abnormal [Not Recovered/Not Resolved]
  - Hepatitis C [Not Recovered/Not Resolved]

NARRATIVE: CASE EVENT DATE: 19980917
